FAERS Safety Report 8997232 (Version 1)
Quarter: 2013Q1

REPORT INFORMATION
  Report Type: Spontaneous
  Country: BE (occurrence: BE)
  Receive Date: 20130104
  Receipt Date: 20130104
  Transmission Date: 20140127
  Serious: Yes (Life-Threatening, Disabling)
  Sender: FDA-Public Use
  Company Number: BE-BAYER-2013-001138

PATIENT
  Sex: Female
  Weight: 55 kg

DRUGS (1)
  1. YAZ [Suspect]
     Indication: DRUG WITHDRAWAL HEADACHE
     Dosage: UNK
     Route: 048
     Dates: start: 201104, end: 201106

REACTIONS (3)
  - Pulmonary embolism [Recovered/Resolved]
  - Chest pain [None]
  - Dyspnoea [None]
